FAERS Safety Report 23359064 (Version 1)
Quarter: 2024Q1

REPORT INFORMATION
  Report Type: Report from Study
  Country: FR (occurrence: FR)
  Receive Date: 20240102
  Receipt Date: 20240102
  Transmission Date: 20240409
  Serious: Yes (Other)
  Sender: FDA-Public Use
  Company Number: FR-DSJP-DSE-2023-153981

PATIENT
  Sex: Female
  Weight: 70 kg

DRUGS (3)
  1. ENHERTU [Suspect]
     Active Substance: FAM-TRASTUZUMAB DERUXTECAN-NXKI
     Indication: HER2 low breast cancer
     Dosage: 4 MG/KG, CYCLIC
     Route: 065
     Dates: start: 20230505, end: 20230505
  2. ENHERTU [Suspect]
     Active Substance: FAM-TRASTUZUMAB DERUXTECAN-NXKI
     Indication: Breast cancer metastatic
     Dosage: 4.7 MG/KG, CYCLIC
     Route: 065
     Dates: end: 20230616
  3. UNSPECIFIED INGREDIENT [Concomitant]
     Active Substance: UNSPECIFIED INGREDIENT
     Indication: Antiemetic supportive care
     Dosage: UNK
     Route: 065

REACTIONS (8)
  - General physical condition abnormal [Unknown]
  - Impaired quality of life [Unknown]
  - Upper limb fracture [Unknown]
  - Fall [Unknown]
  - Intentional product use issue [Recovered/Resolved]
  - Incorrect dose administered [Recovered/Resolved]
  - Intentional product use issue [Recovered/Resolved]
  - Incorrect dose administered [Recovered/Resolved]

NARRATIVE: CASE EVENT DATE: 20230505
